FAERS Safety Report 20055912 (Version 1)
Quarter: 2021Q4

REPORT INFORMATION
  Report Type: Spontaneous
  Country: CN (occurrence: None)
  Receive Date: 20211111
  Receipt Date: 20211111
  Transmission Date: 20220303
  Serious: Yes (Other)
  Sender: FDA-Public Use
  Company Number: CN-ROCHE-2953279

PATIENT
  Age: 83 Year
  Sex: Male

DRUGS (6)
  1. AVASTIN [Suspect]
     Active Substance: BEVACIZUMAB
     Indication: Lung carcinoma cell type unspecified recurrent
     Route: 065
     Dates: start: 202107
  2. AVASTIN [Suspect]
     Active Substance: BEVACIZUMAB
     Route: 065
  3. PEMETREXED [Concomitant]
     Active Substance: PEMETREXED
     Indication: Lung carcinoma cell type unspecified recurrent
     Dates: start: 202107
  4. PEMETREXED [Concomitant]
     Active Substance: PEMETREXED
  5. CARBOPLATIN [Concomitant]
     Active Substance: CARBOPLATIN
     Indication: Lung carcinoma cell type unspecified recurrent
     Dates: start: 202107
  6. CARBOPLATIN [Concomitant]
     Active Substance: CARBOPLATIN

REACTIONS (1)
  - Myelosuppression [Unknown]
